FAERS Safety Report 5670664-3 (Version None)
Quarter: 2008Q1

REPORT INFORMATION
  Report Type: 
  Country: None (occurrence: None)
  Receive Date: 20080314
  Receipt Date: 20080314
  Transmission Date: 20080703
  Serious: Yes (Hospitalization)
  Sender: FDA-Public Use
  Company Number: None

PATIENT
  Age: 79 Year
  Sex: Male

DRUGS (2)
  1. NAPROXEN [Suspect]
  2. PIROXICAM [Suspect]

REACTIONS (1)
  - GASTROINTESTINAL ULCER HAEMORRHAGE [None]
